FAERS Safety Report 7421488-8 (Version None)
Quarter: 2011Q1

REPORT INFORMATION
  Report Type: 
  Country: None (occurrence: None)
  Receive Date: 20110302
  Receipt Date: 20101207
  Transmission Date: 20110831
  Serious: No
  Sender: FDA-Public Use
  Company Number: 020347

PATIENT
  Sex: Male

DRUGS (1)
  1. CIMZIA [Suspect]
     Indication: CROHN'S DISEASE
     Dosage: (SUBCUTANEOUS)
     Route: 058
     Dates: start: 20100701

REACTIONS (3)
  - FATIGUE [None]
  - FREQUENT BOWEL MOVEMENTS [None]
  - VITAMIN B1 INCREASED [None]
